FAERS Safety Report 6055730-5 (Version None)
Quarter: 2009Q1

REPORT INFORMATION
  Report Type: 
  Country: None (occurrence: None)
  Receive Date: 20090126
  Receipt Date: 20090114
  Transmission Date: 20090719
  Serious: Yes (Other)
  Sender: FDA-Public Use
  Company Number: 1000000353

PATIENT
  Sex: Female

DRUGS (3)
  1. ESCITALOPRAM [Suspect]
     Indication: DEPRESSION
     Dosage: ORAL
     Route: 048
     Dates: start: 20060615
  2. ESCITALOPRAM [Suspect]
     Indication: OBSESSIVE-COMPULSIVE DISORDER
     Dosage: ORAL
     Route: 048
     Dates: start: 20060615
  3. TOPAMAX [Concomitant]

REACTIONS (12)
  - ANXIETY [None]
  - APATHY [None]
  - CRYING [None]
  - DEPRESSION [None]
  - FATIGUE [None]
  - HYPERPHAGIA [None]
  - MOOD SWINGS [None]
  - SOMNOLENCE [None]
  - SUICIDAL IDEATION [None]
  - TEAR DISCOLOURATION [None]
  - VOMITING [None]
  - WEIGHT INCREASED [None]
